FAERS Safety Report 5445981-2 (Version None)
Quarter: 2007Q3

REPORT INFORMATION
  Report Type: 
  Country: None (occurrence: None)
  Receive Date: 20070907
  Receipt Date: 20070828
  Transmission Date: 20080115
  Serious: Yes (Hospitalization)
  Sender: FDA-Public Use
  Company Number: US-JNJFOC-20061003663

PATIENT
  Sex: Female
  Weight: 31 kg

DRUGS (12)
  1. REMICADE [Suspect]
     Route: 042
  2. REMICADE [Suspect]
     Indication: COLITIS ULCERATIVE
     Route: 042
  3. IMURAN [Suspect]
  4. IMURAN [Suspect]
     Indication: COLITIS ULCERATIVE
  5. ASACOL [Suspect]
  6. ASACOL [Suspect]
     Indication: COLITIS ULCERATIVE
  7. CALCIUM WITH VITAMIN D AND IRON [Concomitant]
     Dosage: 600 MG CALCIUM AND 18 MG IRON. 1/2 TABLET A DAY FOR ONE WEEK OF THE MONTH.
  8. PREDNISONE [Concomitant]
  9. FLAGYL [Concomitant]
  10. IRON [Concomitant]
     Dosage: EVERY DAY ONE WEEK OUT OF THE MONTH.
  11. IRON [Concomitant]
  12. GUMMY VITAMINS [Concomitant]

REACTIONS (7)
  - ANAEMIA [None]
  - ATELECTASIS [None]
  - DEHYDRATION [None]
  - MYCOPLASMA INFECTION [None]
  - PERICARDIAL EFFUSION [None]
  - PLEURAL EFFUSION [None]
  - PNEUMONIA [None]
